FAERS Safety Report 4307732-4 (Version None)
Quarter: 2004Q1

REPORT INFORMATION
  Report Type: 
  Country: None (occurrence: None)
  Receive Date: 20040227
  Receipt Date: 20040227
  Transmission Date: 20041129
  Serious: Yes (Other)
  Sender: FDA-Public Use
  Company Number: None

PATIENT
  Sex: Female
  Weight: 83.4619 kg

DRUGS (1)
  1. PROZAC [Suspect]
     Dosage: 20 MG PO X SEV. MONTHS
     Route: 048

REACTIONS (3)
  - DRUG EFFECT DECREASED [None]
  - PHARMACEUTICAL PRODUCT COMPLAINT [None]
  - SOCIAL PHOBIA [None]
